FAERS Safety Report 18712221 (Version 1)
Quarter: 2021Q1

REPORT INFORMATION
  Report Type: Spontaneous
  Country: IN (occurrence: IN)
  Receive Date: 20210107
  Receipt Date: 20210107
  Transmission Date: 20210419
  Serious: Yes (Other)
  Sender: FDA-Public Use
  Company Number: NVSC2020IN348336

PATIENT
  Age: 40 Year
  Sex: Male

DRUGS (1)
  1. TERBINAFINE. [Suspect]
     Active Substance: TERBINAFINE
     Indication: DERMATOPHYTOSIS
     Dosage: 4 MG/KG, QD
     Route: 065

REACTIONS (4)
  - Gene mutation identification test positive [Unknown]
  - Treatment failure [Unknown]
  - Pathogen resistance [Unknown]
  - Drug resistance [Unknown]
